FAERS Safety Report 25421207 (Version 1)
Quarter: 2025Q2

REPORT INFORMATION
  Report Type: Report from Study
  Country: VN (occurrence: VN)
  Receive Date: 20250611
  Receipt Date: 20250611
  Transmission Date: 20250717
  Serious: Yes (Other)
  Sender: ROCHE
  Company Number: VN-ROCHE-10000308991

PATIENT

DRUGS (1)
  1. BEVACIZUMAB [Suspect]
     Active Substance: BEVACIZUMAB
     Indication: Retinopathy of prematurity
     Route: 050

REACTIONS (3)
  - Off label use [Unknown]
  - Off label use [Unknown]
  - Retinal detachment [Unknown]
